FAERS Safety Report 7486457-0 (Version None)
Quarter: 2011Q2

REPORT INFORMATION
  Report Type: 
  Country: None (occurrence: None)
  Receive Date: 20110517
  Receipt Date: 20110405
  Transmission Date: 20111010
  Serious: No
  Sender: FDA-Public Use
  Company Number: US-NOVEN-11US002197

PATIENT

DRUGS (1)
  1. DAYTRANA [Suspect]
     Indication: DISTURBANCE IN ATTENTION
     Dosage: 30 MG, QD
     Route: 062
     Dates: start: 20110101

REACTIONS (3)
  - DRY MOUTH [None]
  - GLOSSODYNIA [None]
  - OFF LABEL USE [None]
